FAERS Safety Report 11945313 (Version 2)
Quarter: 2016Q1

REPORT INFORMATION
  Report Type: Spontaneous
  Country: US (occurrence: US)
  Receive Date: 20160125
  Receipt Date: 20160311
  Transmission Date: 20160526
  Serious: Yes (Hospitalization, Other)
  Sender: FDA-Public Use
  Company Number: US-SHIRE-US201600255

PATIENT
  Sex: Female
  Weight: 52.15 kg

DRUGS (2)
  1. ADDERALL XR [Suspect]
     Active Substance: AMPHETAMINE ASPARTATE\AMPHETAMINE SULFATE\DEXTROAMPHETAMINE SACCHARATE\DEXTROAMPHETAMINE SULFATE
     Indication: ATTENTION DEFICIT/HYPERACTIVITY DISORDER
     Dosage: 30 MG, UNKNOWN
     Route: 048
  2. ADDERALL XR [Suspect]
     Active Substance: AMPHETAMINE ASPARTATE\AMPHETAMINE SULFATE\DEXTROAMPHETAMINE SACCHARATE\DEXTROAMPHETAMINE SULFATE
     Dosage: 25 MG, UNKNOWN
     Route: 048

REACTIONS (13)
  - Social anxiety disorder [Not Recovered/Not Resolved]
  - Hospitalisation [Recovered/Resolved]
  - Cerebrovascular accident [Recovered/Resolved]
  - Performance status decreased [Unknown]
  - Victim of sexual abuse [Recovered/Resolved]
  - Panic disorder [Not Recovered/Not Resolved]
  - Prescribed overdose [Not Recovered/Not Resolved]
  - Exposure to unspecified agent [Recovered/Resolved]
  - Attention deficit/hyperactivity disorder [Unknown]
  - Product quality issue [Unknown]
  - Victim of abuse [Unknown]
  - Adverse drug reaction [Unknown]
  - Condition aggravated [Unknown]

NARRATIVE: CASE EVENT DATE: 2015
